FAERS Safety Report 19054264 (Version 3)
Quarter: 2021Q1

REPORT INFORMATION
  Report Type: Spontaneous
  Country: US (occurrence: US)
  Receive Date: 20210325
  Receipt Date: 20210331
  Transmission Date: 20210420
  Serious: No
  Sender: FDA-Public Use
  Company Number: US-ELI_LILLY_AND_COMPANY-US202103011666

PATIENT
  Age: 57 Year
  Sex: Female

DRUGS (4)
  1. HUMULIN N [Suspect]
     Active Substance: INSULIN HUMAN
     Dosage: 31 U, BID
     Route: 065
  2. HUMULIN N [Suspect]
     Active Substance: INSULIN HUMAN
     Dosage: 41 U, BID (BREAKFAST AND DINNER)
     Route: 065
     Dates: start: 20210320
  3. HUMULIN N [Suspect]
     Active Substance: INSULIN HUMAN
     Indication: TYPE 2 DIABETES MELLITUS
     Dosage: 25 U, UNKNOWN
     Route: 065
     Dates: start: 202003
  4. HUMULIN N [Suspect]
     Active Substance: INSULIN HUMAN
     Dosage: 41 U, BID (BREAKFAST AND DINNER)
     Route: 065
     Dates: start: 20210218

REACTIONS (3)
  - Blood glucose decreased [Unknown]
  - Blood glucose increased [Not Recovered/Not Resolved]
  - Wrong technique in product usage process [Not Recovered/Not Resolved]

NARRATIVE: CASE EVENT DATE: 20210218
